FAERS Safety Report 22047502 (Version 1)
Quarter: 2023Q1

REPORT INFORMATION
  Report Type: Spontaneous
  Country: US (occurrence: US)
  Receive Date: 20230301
  Receipt Date: 20230301
  Transmission Date: 20230418
  Serious: No
  Sender: FDA-Public Use
  Company Number: US-Ipsen Biopharmaceuticals, Inc.-2023-03272

PATIENT
  Sex: Female

DRUGS (3)
  1. DYSPORT [Suspect]
     Active Substance: ABOBOTULINUMTOXINA
     Indication: Dermatitis contact
     Dosage: 120 UNIT
     Dates: start: 20230125, end: 20230125
  2. HYALURONIC ACID [Suspect]
     Active Substance: HYALURONIC ACID
     Indication: Product used for unknown indication
     Dosage: LESTYLANE  LYFT WITH LIDOCAINE
     Dates: start: 20230125, end: 20230125
  3. HYALURONIC ACID\LIDOCAINE [Suspect]
     Active Substance: HYALURONIC ACID\LIDOCAINE
     Indication: Product used for unknown indication
     Dosage: RESTYLANE-L  INJECTABLE GEL WITH 0.3% LIDOCAINE

REACTIONS (4)
  - Eyelids pruritus [Recovering/Resolving]
  - Eye swelling [Recovered/Resolved]
  - Off label use [Unknown]
  - Erythema of eyelid [Recovered/Resolved]
